FAERS Safety Report 5595372-9 (Version None)
Quarter: 2008Q1

REPORT INFORMATION
  Report Type: 
  Country: None (occurrence: None)
  Receive Date: 20080117
  Receipt Date: 20080109
  Transmission Date: 20080703
  Serious: Yes (Death)
  Sender: FDA-Public Use
  Company Number: US-PFIZER INC-2008003718

PATIENT
  Age: 49 Year
  Sex: Male

DRUGS (3)
  1. DOXEPIN HCL [Suspect]
  2. SSRI [Suspect]
  3. BENZODIAZEPINE DERIVATIVES [Suspect]

REACTIONS (1)
  - COMPLETED SUICIDE [None]
